FAERS Safety Report 10344269 (Version 1)
Quarter: 2014Q3

REPORT INFORMATION
  Report Type: Spontaneous
  Country: US (occurrence: None)
  Receive Date: 20140724
  Receipt Date: 20140724
  Transmission Date: 20150326
  Serious: Yes (Other)
  Sender: FDA-Public Use
  Company Number: None

PATIENT
  Age: 59 Year
  Sex: Female
  Weight: 47.17 kg

DRUGS (1)
  1. PATADAY [Suspect]
     Active Substance: OLOPATADINE HYDROCHLORIDE
     Indication: SEASONAL ALLERGY
     Dosage: 1 DROP DAILY, ONCE DAILY, INTO THE EYE
     Route: 031
     Dates: start: 20140711, end: 20140715

REACTIONS (5)
  - Back pain [None]
  - Abnormal dreams [None]
  - Insomnia [None]
  - General physical condition abnormal [None]
  - Diarrhoea [None]

NARRATIVE: CASE EVENT DATE: 20140712
